FAERS Safety Report 20681205 (Version 1)
Quarter: 2022Q2

REPORT INFORMATION
  Report Type: Spontaneous
  Country: US (occurrence: US)
  Receive Date: 20220406
  Receipt Date: 20220406
  Transmission Date: 20220721
  Serious: Yes (Other)
  Sender: FDA-Public Use
  Company Number: US-SA-SAC20220401000932

PATIENT
  Sex: Male

DRUGS (3)
  1. AUBAGIO [Suspect]
     Active Substance: TERIFLUNOMIDE
     Indication: Multiple sclerosis
     Dosage: 1 DF, QD
     Route: 048
  2. ZEPOSIA [Concomitant]
     Active Substance: OZANIMOD HYDROCHLORIDE
  3. AVONEX [Concomitant]
     Active Substance: INTERFERON BETA-1A

REACTIONS (7)
  - JC virus infection [Unknown]
  - Fatigue [Unknown]
  - Dizziness [Unknown]
  - Amnesia [Unknown]
  - Dysphagia [Unknown]
  - Arthralgia [Unknown]
  - Headache [Unknown]
